FAERS Safety Report 4534490-0 (Version None)
Quarter: 2004Q4

REPORT INFORMATION
  Report Type: 
  Country: None (occurrence: None)
  Receive Date: 20041221
  Receipt Date: 20041221
  Transmission Date: 20050328
  Serious: Yes (Death)
  Sender: FDA-Public Use
  Company Number: None

PATIENT
  Age: 65 Year
  Sex: Female

DRUGS (4)
  1. LEVAQUIN [Suspect]
     Indication: PANCREATITIS
     Dosage: 500 MG IV X 1 DOSE
     Route: 042
     Dates: start: 20041006
  2. FENTANYL [Concomitant]
  3. DEMEROL [Concomitant]
  4. MORPHINE [Concomitant]

REACTIONS (4)
  - ELECTROCARDIOGRAM ABNORMAL [None]
  - ENTERITIS [None]
  - HYPOTENSION [None]
  - PANCREATITIS [None]
